FAERS Safety Report 6074762-4 (Version None)
Quarter: 2009Q1

REPORT INFORMATION
  Report Type: 
  Country: None (occurrence: None)
  Receive Date: 20090212
  Receipt Date: 20090206
  Transmission Date: 20090719
  Serious: Yes (Hospitalization)
  Sender: FDA-Public Use
  Company Number: US-JNJFOC-20090202531

PATIENT
  Sex: Male

DRUGS (1)
  1. RISPERDAL [Suspect]
     Indication: DRUG USE FOR UNKNOWN INDICATION
     Dosage: 1 AT BED TIME
     Route: 048

REACTIONS (3)
  - HOSPITALISATION [None]
  - PROTEIN ALBUMIN RATIO [None]
  - PROTEINURIA [None]
